FAERS Safety Report 11071262 (Version 1)
Quarter: 2015Q2

REPORT INFORMATION
  Report Type: Spontaneous
  Country: US (occurrence: None)
  Receive Date: 20150427
  Receipt Date: 20150427
  Transmission Date: 20150821
  Serious: No
  Sender: FDA-Public Use
  Company Number: None

PATIENT
  Age: 68 Year
  Sex: Female
  Weight: 61.24 kg

DRUGS (9)
  1. SIMVASTATIN. [Concomitant]
     Active Substance: SIMVASTATIN
  2. EVISTA [Concomitant]
     Active Substance: RALOXIFENE HYDROCHLORIDE
  3. PREDNISOLONE ACETATE. [Concomitant]
     Active Substance: PREDNISOLONE ACETATE
  4. PROPOFOL. [Suspect]
     Active Substance: PROPOFOL
     Indication: ANAESTHESIA
     Dates: start: 20150421, end: 20150421
  5. PROPOFOL. [Suspect]
     Active Substance: PROPOFOL
     Indication: ENDOSCOPY
     Dates: start: 20150421, end: 20150421
  6. PROLENSA [Concomitant]
     Active Substance: BROMFENAC SODIUM
  7. POLYMYXIN-B [Concomitant]
  8. TMP [Concomitant]
  9. CALCIUM+D3+K2 [Concomitant]

REACTIONS (7)
  - Haemorrhage [None]
  - Sinus disorder [None]
  - Haemoptysis [None]
  - Chills [None]
  - Pyrexia [None]
  - Productive cough [None]
  - Oesophageal disorder [None]

NARRATIVE: CASE EVENT DATE: 20150421
